FAERS Safety Report 9624316 (Version 1)
Quarter: 2013Q4

REPORT INFORMATION
  Report Type: Spontaneous
  Country: US (occurrence: US)
  Receive Date: 20131015
  Receipt Date: 20131015
  Transmission Date: 20140711
  Serious: Yes (Other)
  Sender: FDA-Public Use
  Company Number: US-PFIZER INC-2013292011

PATIENT
  Age: 57 Year
  Sex: Female

DRUGS (2)
  1. PREMARIN [Suspect]
     Indication: VULVOVAGINAL DISCOMFORT
     Dosage: UNK
  2. PREMARIN [Suspect]
     Indication: DYSPAREUNIA

REACTIONS (3)
  - Haemorrhage [Unknown]
  - Pruritus [Unknown]
  - Burning sensation [Unknown]
